FAERS Safety Report 8193641-X (Version None)
Quarter: 2012Q1

REPORT INFORMATION
  Report Type: 
  Country: None (occurrence: None)
  Receive Date: 20120308
  Receipt Date: 20120228
  Transmission Date: 20120608
  Serious: Yes (Hospitalization)
  Sender: FDA-Public Use
  Company Number: US-BAXTER-2012BH004287

PATIENT
  Sex: Female

DRUGS (3)
  1. DIANEAL [Suspect]
     Indication: PERITONEAL DIALYSIS
     Route: 033
     Dates: start: 20110101
  2. DIANEAL [Suspect]
     Indication: PERITONEAL DIALYSIS
     Route: 033
     Dates: start: 20110101
  3. ALPRAZOLAM [Suspect]
     Indication: CONVULSION
     Route: 065
     Dates: start: 20110101

REACTIONS (4)
  - CONVULSION [None]
  - FATIGUE [None]
  - PNEUMONIA [None]
  - CONFUSIONAL STATE [None]
